FAERS Safety Report 14099646 (Version 2)
Quarter: 2020Q4

REPORT INFORMATION
  Report Type: Spontaneous
  Country: US (occurrence: US)
  Receive Date: 20171017
  Receipt Date: 20201009
  Transmission Date: 20210113
  Serious: Yes (Hospitalization, Other)
  Sender: FDA-Public Use
  Company Number: US-AMNEAL PHARMACEUTICALS-2017AMN00694

PATIENT
  Age: 65 Year
  Sex: Male
  Weight: 112 kg

DRUGS (3)
  1. PF-06290510/PLACEBO [Concomitant]
     Indication: IMMUNISATION
     Dosage: 320MCGLVIAL, POWDER FOR SOLUTION FOR INJECTION, SINGLE, INTRAMUSCULAR IN DELTOID LEFT
     Route: 030
     Dates: start: 20170523, end: 20170523
  2. HYDROMORPHONE HYDROCHLORIDE. [Concomitant]
     Active Substance: HYDROMORPHONE HYDROCHLORIDE
     Indication: PROCEDURAL PAIN
     Dosage: 0.2 MILLIGRAM, PRN
     Route: 065
     Dates: start: 20170601, end: 20170602
  3. HYDROCODONE AND ACETAMINOPHEN [Suspect]
     Active Substance: ACETAMINOPHEN\HYDROCODONE
     Indication: PROCEDURAL PAIN
     Dosage: UNK
     Route: 048
     Dates: start: 20170602

REACTIONS (1)
  - Urinary retention postoperative [Recovered/Resolved]

NARRATIVE: CASE EVENT DATE: 20170603
